FAERS Safety Report 6408425-X (Version None)
Quarter: 2009Q4

REPORT INFORMATION
  Report Type: 
  Country: None (occurrence: None)
  Receive Date: 20091016
  Receipt Date: 20091001
  Transmission Date: 20100525
  Serious: Yes (Hospitalization)
  Sender: FDA-Public Use
  Company Number: GXKR2009GB10897

PATIENT
  Age: 68 Year
  Sex: Male

DRUGS (4)
  1. SIMVASTATIN [Suspect]
     Indication: BLOOD CHOLESTEROL INCREASED
     Dosage: 40 MG, QS, ORAL
     Route: 048
     Dates: start: 20020101, end: 20080101
  2. FUSIDIC ACID [Suspect]
     Indication: STAPHYLOCOCCAL INFECTION
     Dosage: 500 MG, TID, UNKNOWN
  3. FLOXACILLIN SODIUM [Concomitant]
  4. ATENOLOL [Concomitant]

REACTIONS (6)
  - ANKLE FRACTURE [None]
  - DRUG INTERACTION [None]
  - HAEMATURIA [None]
  - PROTEINURIA [None]
  - RHABDOMYOLYSIS [None]
  - SEPTIC ARTHRITIS STAPHYLOCOCCAL [None]
